FAERS Safety Report 5719262-3 (Version None)
Quarter: 2008Q2

REPORT INFORMATION
  Report Type: 
  Country: None (occurrence: None)
  Receive Date: 20080423
  Receipt Date: 20080411
  Transmission Date: 20081010
  Serious: Yes (Other)
  Sender: FDA-Public Use
  Company Number: 107#03#2008-02178

PATIENT
  Age: 40 Year
  Sex: Female

DRUGS (12)
  1. MIRTAZAPINE [Suspect]
     Indication: DEPRESSION
     Dosage: 30 MG ORAL
     Route: 048
     Dates: start: 20071120
  2. AMILORIDE (AMILORIDE) [Concomitant]
  3. CALCICHEW (CALCIUM CARBONATE) [Concomitant]
  4. CIPROFLOXACIN [Concomitant]
  5. FOSCARNET SODIUM [Concomitant]
  6. LENOGRASTIM (LENOGRASTIM) [Concomitant]
  7. MYCOPHENOLATE MOFETIL [Concomitant]
  8. PENICILLIN V [Concomitant]
  9. PREDNISOLONE [Concomitant]
  10. RANITIDINE [Concomitant]
  11. SIROLIMUS (SIROLIMUS) [Concomitant]
  12. VALGANCICLOVIR HCL [Concomitant]

REACTIONS (1)
  - NEUROLOGICAL SYMPTOM [None]
